FAERS Safety Report 8369587-0 (Version None)
Quarter: 2012Q2

REPORT INFORMATION
  Report Type: 
  Country: None (occurrence: None)
  Receive Date: 20120517
  Receipt Date: 20120517
  Transmission Date: 20120825
  Serious: Yes (Disabling, Other)
  Sender: FDA-Public Use
  Company Number: None

PATIENT
  Age: 38 Year
  Sex: Male
  Weight: 104.3273 kg

DRUGS (1)
  1. STRATTERA [Suspect]
     Indication: ATTENTION DEFICIT/HYPERACTIVITY DISORDER
     Dosage: 40MG 1/DAY PO
     Route: 048
     Dates: start: 20080507, end: 20080514

REACTIONS (9)
  - FATIGUE [None]
  - DISTURBANCE IN ATTENTION [None]
  - PREMATURE EJACULATION [None]
  - CHEST PAIN [None]
  - HEADACHE [None]
  - CONDITION AGGRAVATED [None]
  - NERVOUSNESS [None]
  - ERECTILE DYSFUNCTION [None]
  - INSOMNIA [None]
